FAERS Safety Report 16355877 (Version 1)
Quarter: 2019Q2

REPORT INFORMATION
  Report Type: Spontaneous
  Country: US (occurrence: US)
  Receive Date: 20190526
  Receipt Date: 20190526
  Transmission Date: 20190711
  Serious: No
  Sender: FDA-Public Use
  Company Number: US-JNJFOC-20190506355

PATIENT
  Age: 77 Year
  Sex: Female

DRUGS (1)
  1. TYLENOL EXTRA STRENGTH [Suspect]
     Active Substance: ACETAMINOPHEN
     Indication: PAIN
     Dosage: TWO CAPLETS
     Route: 048

REACTIONS (3)
  - Dyspnoea [Recovered/Resolved]
  - Cough [Recovering/Resolving]
  - Reaction to excipient [Recovered/Resolved]
